FAERS Safety Report 10565203 (Version 2)
Quarter: 2014Q4

REPORT INFORMATION
  Report Type: Spontaneous
  Country: JP (occurrence: None)
  Receive Date: 20141103
  Receipt Date: 20141112
  Transmission Date: 20150529
  Serious: Yes (Hospitalization)
  Sender: FDA-Public Use
  Company Number: 2014JP010706

PATIENT
  Age: 72 Year
  Sex: Male
  Weight: 56 kg

DRUGS (9)
  1. ZOPICLON [Suspect]
     Active Substance: ZOPICLONE
     Indication: INSOMNIA
     Dosage: 7.5 MG, QD, ORAL
     Route: 048
     Dates: start: 20141022, end: 20141022
  2. NETUPITANT [Suspect]
     Active Substance: NETUPITANT
     Indication: PROPHYLAXIS OF NAUSEA AND VOMITING
     Dosage: 3 DF, SINGLE, ORAL
     Route: 048
     Dates: start: 20141016, end: 20141016
  3. DECADRON [Suspect]
     Active Substance: DEXAMETHASONE
     Indication: PROPHYLAXIS OF NAUSEA AND VOMITING
     Dosage: 8 MG, QD, ORAL
     Route: 048
     Dates: start: 20141017, end: 20141019
  4. ALOXI [Suspect]
     Active Substance: PALONOSETRON HYDROCHLORIDE
     Indication: PROPHYLAXIS OF NAUSEA AND VOMITING
     Dosage: 0.75 MG, SINGLE, INTRAVENOUS
     Route: 042
     Dates: start: 20141016, end: 20141016
  5. NIFEDIPINE (NIFEDIPINE) [Concomitant]
  6. CISPLATIN (CISPLATIN) [Concomitant]
     Active Substance: CISPLATIN
  7. MAGMITT (MAGNESIUM OXIDE) [Concomitant]
     Active Substance: MAGNESIUM OXIDE
  8. DOCETAXEL (DOCETAXEL) [Concomitant]
     Active Substance: DOCETAXEL
  9. DEXART [Suspect]
     Active Substance: DEXAMETHASONE SODIUM PHOSPHATE
     Indication: PROPHYLAXIS OF NAUSEA AND VOMITING
     Dosage: 12 MG, SINGLE, INTRAVENOUS
     Route: 042
     Dates: start: 20141016, end: 20141016

REACTIONS (8)
  - Nausea [None]
  - Incoherent [None]
  - White blood cell count decreased [None]
  - Diarrhoea [None]
  - Febrile neutropenia [None]
  - Hyponatraemia [None]
  - Delirium [None]
  - Abnormal behaviour [None]

NARRATIVE: CASE EVENT DATE: 20141022
